FAERS Safety Report 8186485-6 (Version None)
Quarter: 2012Q1

REPORT INFORMATION
  Report Type: 
  Country: None (occurrence: None)
  Receive Date: 20120302
  Receipt Date: 20120302
  Transmission Date: 20120608
  Serious: Yes (Other)
  Sender: FDA-Public Use
  Company Number: None

PATIENT
  Sex: Female
  Weight: 80.6 kg

DRUGS (2)
  1. ZEVALIN [Suspect]
     Dosage: 32 MCI ONCE IV
     Route: 042
     Dates: start: 20110317
  2. BENDAMUSTINE 90 MG/M2 CEPHALON [Suspect]
     Indication: B-CELL LYMPHOMA
     Dosage: 168-175 MG 2 DAYS PER CYCLE IV
     Route: 042
     Dates: start: 20101028, end: 20110121

REACTIONS (4)
  - LEUKOCYTOSIS [None]
  - BLOOD LACTATE DEHYDROGENASE INCREASED [None]
  - HERPES ZOSTER [None]
  - CHRONIC MYELOID LEUKAEMIA [None]
